FAERS Safety Report 22174357 (Version 1)
Quarter: 2023Q2

REPORT INFORMATION
  Report Type: Report from Study
  Country: FR (occurrence: FR)
  Receive Date: 20230405
  Receipt Date: 20230405
  Transmission Date: 20230722
  Serious: Yes (Death, Other)
  Sender: FDA-Public Use
  Company Number: FR-PFIZER INC-2021619189

PATIENT
  Age: 44 Year
  Sex: Female

DRUGS (13)
  1. DOXORUBICIN [Suspect]
     Active Substance: DOXORUBICIN
     Indication: Burkitt^s leukaemia
     Dosage: 60 MILLIGRAM/SQ. METER, CYCLICAL, D3
     Route: 065
  2. PREDNISONE [Suspect]
     Active Substance: PREDNISONE
     Indication: Burkitt^s leukaemia
     Dosage: 60 MILLIGRAM/SQ. METER, CYCLICAL, DAY,  FROM DAY 1 TO DAY 7
     Route: 065
  3. CYCLOPHOSPHAMIDE [Suspect]
     Active Substance: CYCLOPHOSPHAMIDE
     Indication: Burkitt^s leukaemia
     Dosage: 500 MILLIGRAM/SQ. METER, CYCLICAL, FROM DAY 2 TO DAY 4
     Route: 065
  4. CYCLOPHOSPHAMIDE [Suspect]
     Active Substance: CYCLOPHOSPHAMIDE
     Dosage: 300 MILLIGRAM/SQ. METER, CYCLICAL  ON DAY 1
     Route: 065
  5. CYCLOPHOSPHAMIDE [Suspect]
     Active Substance: CYCLOPHOSPHAMIDE
     Dosage: 1000 MILLIGRAM/SQ. METER, CYCLICAL, ONCE A DAY, FROM DAY 2 TO DAY 4
     Route: 065
  6. CYTARABINE [Suspect]
     Active Substance: CYTARABINE
     Indication: Burkitt^s leukaemia
     Dosage: 100 MILLIGRAM/SQ. METER, CYCLICAL D1-D5
     Route: 058
  7. CYTARABINE [Suspect]
     Active Substance: CYTARABINE
     Dosage: 50 MILLIGRAM/SQ. METER, CYCLICAL, 50 MG/M2/DAY FROM DAY 1 TO DAY 5 (12-H INFUSION BEFORE HIGHDOSE AR
     Route: 058
  8. CYTARABINE [Suspect]
     Active Substance: CYTARABINE
     Dosage: 3 GRAM PER SQUARE METRE, CYCLICAL, FROM DAY 2 TO DAY 5
     Route: 058
  9. ETOPOSIDE [Suspect]
     Active Substance: ETOPOSIDE
     Indication: Burkitt^s leukaemia
     Dosage: 200 MILLIGRAM/SQ. METER, CYCLICAL, ONCE A DAY,  ON DAY 2 TO DAY 5
     Route: 065
  10. ETOPOSIDE [Suspect]
     Active Substance: ETOPOSIDE
     Dosage: 150 MILLIGRAM/SQ. METER, CYCLICAL, D1-D3
     Route: 065
  11. METHOTREXATE SODIUM [Suspect]
     Active Substance: METHOTREXATE SODIUM
     Indication: Burkitt^s leukaemia
     Dosage: 8 GRAM PER SQUARE METRE, ONCE A DAY,  D1
     Route: 065
  12. METHOTREXATE SODIUM [Suspect]
     Active Substance: METHOTREXATE SODIUM
     Dosage: 3 GRAM PER SQUARE METRE, ONCE A DAY, DAY 1
     Route: 065
  13. VINCRISTINE SULFATE [Suspect]
     Active Substance: VINCRISTINE SULFATE
     Indication: Burkitt^s leukaemia
     Dosage: 2 MILLIGRAM, ONCE A DAY,  ON DAY 1 AND DAY 6
     Route: 065

REACTIONS (1)
  - Sepsis [Fatal]
